FAERS Safety Report 5767566-0 (Version None)
Quarter: 2008Q2

REPORT INFORMATION
  Report Type: 
  Country: None (occurrence: None)
  Receive Date: 20080612
  Receipt Date: 20080604
  Transmission Date: 20081010
  Serious: No
  Sender: FDA-Public Use
  Company Number: BR-ROCHE-569027

PATIENT
  Age: 22 Year
  Sex: Female
  Weight: 45 kg

DRUGS (2)
  1. ROACUTAN [Suspect]
     Indication: ACNE
     Route: 048
     Dates: start: 20071016, end: 20080216
  2. 1 CONCOMITANT DRUG [Concomitant]
     Indication: CONTRACEPTION

REACTIONS (2)
  - NO ADVERSE EVENT [None]
  - PREGNANCY [None]
